FAERS Safety Report 4712492-9 (Version None)
Quarter: 2005Q3

REPORT INFORMATION
  Report Type: 
  Country: None (occurrence: None)
  Receive Date: 20050711
  Receipt Date: 20050627
  Transmission Date: 20060218
  Serious: Yes (Hospitalization, Other)
  Sender: FDA-Public Use
  Company Number: 2005066818

PATIENT
  Age: 51 Year
  Sex: Female
  Weight: 90.7194 kg

DRUGS (3)
  1. CELEBREX [Suspect]
     Indication: OSTEOARTHRITIS
     Dosage: 200 MG (200 MG, 1 IN 1 D), ORAL
     Route: 048
     Dates: start: 19990101
  2. TRIAMTERENE AND HYDROCHLOROTHIAZID ^HARRIS^ (HYDROCHLOROTHIAZIDE, TRIA [Concomitant]
  3. VERAPAMIL [Concomitant]

REACTIONS (9)
  - BONE DISORDER [None]
  - DISCOMFORT [None]
  - DRUG EFFECT DECREASED [None]
  - HEPATIC CYST [None]
  - JOINT CREPITATION [None]
  - MENISCUS LESION [None]
  - PAIN [None]
  - TENDERNESS [None]
  - X-RAY LIMB ABNORMAL [None]
